FAERS Safety Report 16614532 (Version 3)
Quarter: 2021Q1

REPORT INFORMATION
  Report Type: Spontaneous
  Country: US (occurrence: US)
  Receive Date: 20190723
  Receipt Date: 20210218
  Transmission Date: 20210419
  Serious: No
  Sender: FDA-Public Use
  Company Number: US-PFIZER INC-2019310959

PATIENT
  Age: 71 Year
  Sex: Female

DRUGS (2)
  1. EUCRISA [Suspect]
     Active Substance: CRISABOROLE
     Indication: DERMATITIS ALLERGIC
     Dosage: UNK, 1 TO 3 TIMES DAILY (APPLY ON BODY AS DIRECTED/APPLY A THIN LAYER TO AFFECTED AREAS ON BODY)
  2. EUCRISA [Suspect]
     Active Substance: CRISABOROLE
     Indication: ECZEMA

REACTIONS (3)
  - Intentional product misuse [Unknown]
  - Off label use [Unknown]
  - Pruritus [Unknown]
